FAERS Safety Report 9451155 (Version 1)
Quarter: 2013Q3

REPORT INFORMATION
  Report Type: Report from Study
  Country: DE (occurrence: DE)
  Receive Date: 20130809
  Receipt Date: 20130809
  Transmission Date: 20140515
  Serious: Yes (Hospitalization)
  Sender: FDA-Public Use
  Company Number: DE-ABBOTT-13P-062-1128456-00

PATIENT
  Age: 55 Year
  Sex: Female

DRUGS (4)
  1. HUMIRA [Suspect]
     Indication: RHEUMATOID ARTHRITIS
     Route: 058
     Dates: start: 201105
  2. METHOTREXATE [Concomitant]
     Indication: RHEUMATOID ARTHRITIS
     Dates: start: 20100204, end: 20101116
  3. METHOTREXATE [Concomitant]
     Dates: start: 20101116, end: 20111130
  4. METHOTREXATE [Concomitant]
     Dates: start: 20111130

REACTIONS (3)
  - Tendon sheath incision [Recovered/Resolved]
  - Exostosis [Recovered/Resolved]
  - Febrile infection [Unknown]
